FAERS Safety Report 5375986-1 (Version None)
Quarter: 2007Q2

REPORT INFORMATION
  Report Type: 
  Country: None (occurrence: None)
  Receive Date: 20070627
  Receipt Date: 20070627
  Transmission Date: 20071010
  Serious: No
  Sender: FDA-Public Use
  Company Number: None

PATIENT
  Age: 27 Year
  Sex: Male
  Weight: 68.0396 kg

DRUGS (2)
  1. SEROQUEL [Suspect]
     Indication: PSYCHOTIC DISORDER
     Dosage: 900 MG BEDTIME  BUCCAL
     Route: 002
     Dates: start: 20070308, end: 20070404
  2. SEROQUEL [Suspect]
     Indication: AFFECTIVE DISORDER
     Dosage: 400MG MORNING BUCCAL
     Route: 002
     Dates: start: 20070306, end: 20070404

REACTIONS (1)
  - LEUKOPENIA [None]
